FAERS Safety Report 7078160-6 (Version None)
Quarter: 2010Q4

REPORT INFORMATION
  Report Type: 
  Country: None (occurrence: None)
  Receive Date: 20101101
  Receipt Date: 20101101
  Transmission Date: 20110411
  Serious: No
  Sender: FDA-Public Use
  Company Number: None

PATIENT
  Age: 53 Year
  Sex: Female
  Weight: 63.9572 kg

DRUGS (1)
  1. ZOMETA [Suspect]
     Indication: BREAST CANCER STAGE I

REACTIONS (2)
  - JOINT RANGE OF MOTION DECREASED [None]
  - MYALGIA [None]
